FAERS Safety Report 10641436 (Version 2)
Quarter: 2014Q4

REPORT INFORMATION
  Report Type: Report from Study
  Country: KR (occurrence: KR)
  Receive Date: 20141209
  Receipt Date: 20141209
  Transmission Date: 20150529
  Serious: Yes (Other)
  Sender: FDA-Public Use
  Company Number: KR-GLAXOSMITHKLINE-KR2014GSK026187

PATIENT
  Age: 37 Year
  Sex: Male

DRUGS (2)
  1. LAMIVUDINE. [Suspect]
     Active Substance: LAMIVUDINE
     Indication: CHRONIC HEPATITIS B
     Dosage: UNK
  2. ADEFOVIR [Suspect]
     Active Substance: ADEFOVIR
     Indication: CHRONIC HEPATITIS B

REACTIONS (2)
  - Drug resistance [Unknown]
  - Viral mutation identified [Unknown]
